FAERS Safety Report 4945362-1 (Version None)
Quarter: 2006Q1

REPORT INFORMATION
  Report Type: 
  Country: None (occurrence: None)
  Receive Date: 20060315
  Receipt Date: 20060315
  Transmission Date: 20060701
  Serious: Yes (Hospitalization)
  Sender: FDA-Public Use
  Company Number: None

PATIENT
  Age: 78 Year
  Sex: Male
  Weight: 59 kg

DRUGS (5)
  1. DIGOXIN [Suspect]
     Indication: ATRIAL FIBRILLATION
     Dosage: 0.25MG PO  QD
     Route: 048
  2. ASPIRIN [Concomitant]
  3. BENZOTROPINE [Concomitant]
  4. CARBAMAZEPINE [Concomitant]
  5. OLANZAPINE [Concomitant]

REACTIONS (7)
  - AGITATION [None]
  - CARDIOACTIVE DRUG LEVEL INCREASED [None]
  - CLOSTRIDIAL INFECTION [None]
  - DELUSION [None]
  - HALLUCINATION [None]
  - MENTAL DISORDER [None]
  - NAUSEA [None]
